FAERS Safety Report 6772885-5 (Version None)
Quarter: 2010Q2

REPORT INFORMATION
  Report Type: 
  Country: None (occurrence: None)
  Receive Date: 20100616
  Receipt Date: 20100603
  Transmission Date: 20101027
  Serious: Yes (Other)
  Sender: FDA-Public Use
  Company Number: US-ELI_LILLY_AND_COMPANY-US201006002206

PATIENT
  Age: 31 Year
  Sex: Female
  Weight: 74.83 kg

DRUGS (4)
  1. SYMBYAX [Suspect]
     Indication: DEPRESSION
     Dosage: UNK, DAILY (1/D)
  2. SYMBYAX [Suspect]
     Dosage: UNK, QOD
  3. SYMBYAX [Suspect]
     Dosage: UNK, 3/W
  4. AMBIEN [Concomitant]

REACTIONS (8)
  - ADVERSE EVENT [None]
  - DISTURBANCE IN ATTENTION [None]
  - DRUG WITHDRAWAL SYNDROME [None]
  - EYE MOVEMENT DISORDER [None]
  - OFF LABEL USE [None]
  - PARAESTHESIA [None]
  - ROAD TRAFFIC ACCIDENT [None]
  - WEIGHT INCREASED [None]
